FAERS Safety Report 6556663-8 (Version None)
Quarter: 2010Q1

REPORT INFORMATION
  Report Type: 
  Country: None (occurrence: None)
  Receive Date: 20100128
  Receipt Date: 20100118
  Transmission Date: 20100710
  Serious: Yes (Hospitalization, Other)
  Sender: FDA-Public Use
  Company Number: US-PFIZER INC-2009309033

PATIENT
  Sex: Female
  Weight: 70 kg

DRUGS (11)
  1. TOVIAZ [Suspect]
     Indication: HYPERTONIC BLADDER
     Dosage: UNK
     Dates: start: 20090101
  2. ARMODAFINIL [Suspect]
     Dosage: 150 MG, 1X/DAY
     Dates: start: 20090101
  3. FLUOROMETHOLONE ACETATE [Concomitant]
     Dosage: UNK
  4. EFFEXOR [Concomitant]
     Dosage: UNK
  5. LORAZEPAM [Concomitant]
     Dosage: UNK
  6. LEVOTHYROXINE [Concomitant]
     Dosage: UNK
  7. ENALAPRIL [Concomitant]
     Dosage: UNK
  8. ASPIRIN [Concomitant]
     Dosage: UNK
  9. OMEPRAZOLE [Concomitant]
     Dosage: UNK
  10. COLACE [Concomitant]
     Dosage: UNK
  11. ESTRACE [Concomitant]
     Dosage: UNK

REACTIONS (3)
  - DIARRHOEA [None]
  - STEVENS-JOHNSON SYNDROME [None]
  - WOUND [None]
